FAERS Safety Report 24947780 (Version 1)
Quarter: 2025Q1

REPORT INFORMATION
  Report Type: Spontaneous
  Country: US (occurrence: US)
  Receive Date: 20250210
  Receipt Date: 20250210
  Transmission Date: 20250409
  Serious: Yes (Other)
  Sender: DR REDDYS
  Company Number: US-DRL-USA-USA/2025/02/001791

PATIENT
  Age: 23 Year
  Sex: Female

DRUGS (5)
  1. DESMOPRESSIN [Suspect]
     Active Substance: DESMOPRESSIN
     Indication: Inappropriate sinus tachycardia
  2. CLONIDINE [Suspect]
     Active Substance: CLONIDINE
     Indication: Inappropriate sinus tachycardia
  3. MIDODRINE [Concomitant]
     Active Substance: MIDODRINE
     Indication: Inappropriate sinus tachycardia
  4. IVABRADINE [Concomitant]
     Active Substance: IVABRADINE
     Indication: Inappropriate sinus tachycardia
  5. SODIUM CHLORIDE [Concomitant]
     Active Substance: SODIUM CHLORIDE
     Indication: Inappropriate sinus tachycardia
     Route: 040

REACTIONS (1)
  - Drug ineffective for unapproved indication [Unknown]
